FAERS Safety Report 21290005 (Version 1)
Quarter: 2022Q3

REPORT INFORMATION
  Report Type: Spontaneous
  Country: CN (occurrence: CN)
  Receive Date: 20220902
  Receipt Date: 20220902
  Transmission Date: 20221027
  Serious: Yes (Other)
  Sender: FDA-Public Use
  Company Number: None

PATIENT
  Age: 52 Year
  Sex: Male
  Weight: 67 kg

DRUGS (3)
  1. MANNITOL [Suspect]
     Active Substance: MANNITOL
     Indication: Diuretic therapy
     Dosage: 25 G ONCE DAILY, INJECTION
     Route: 041
     Dates: start: 20220620, end: 20220629
  2. MANNITOL [Suspect]
     Active Substance: MANNITOL
     Indication: Oedema
  3. MANNITOL [Suspect]
     Active Substance: MANNITOL
     Indication: Swelling

REACTIONS (1)
  - Pruritus [Recovering/Resolving]

NARRATIVE: CASE EVENT DATE: 20220629
